FAERS Safety Report 15108076 (Version 3)
Quarter: 2018Q3

REPORT INFORMATION
  Report Type: Report from Study
  Country: None (occurrence: US)
  Receive Date: 20180704
  Receipt Date: 20180808
  Transmission Date: 20181010
  Serious: Yes (Other)
  Sender: FDA-Public Use
  Company Number: US-ABBVIE-18K-163-2240133-00

PATIENT
  Age: 68 Year
  Sex: Female

DRUGS (1)
  1. HUMIRA [Suspect]
     Active Substance: ADALIMUMAB
     Indication: RHEUMATOID ARTHRITIS
     Route: 058

REACTIONS (5)
  - Hypersensitivity [Unknown]
  - Malaise [Unknown]
  - Macular degeneration [Unknown]
  - Sensitivity to weather change [Unknown]
  - Pain [Unknown]

NARRATIVE: CASE EVENT DATE: 2018
